FAERS Safety Report 7362467 (Version 1)
Quarter: 2020Q3

REPORT INFORMATION
  Report Type: Spontaneous
  Country: GB (occurrence: None)
  Receive Date: 20100408
  Receipt Date: 20100408
  Transmission Date: 20201104
  Serious: Yes (Life-Threatening, Hospitalization)
  Sender: FDA-Public Use
  Company Number: 549777

PATIENT
  Age: 36 Year
  Sex: Female
  Weight: 63 kg

DRUGS (9)
  1. MIDAZOLAM HYDROCHLORIDE. [Suspect]
     Active Substance: MIDAZOLAM HYDROCHLORIDE
     Indication: POSTOPERATIVE ANALGESIA
     Dates: start: 20100306
  2. (AMITRIPTYLINE) [Concomitant]
  3. PROPRANOLOL [Concomitant]
     Active Substance: PROPRANOLOL HYDROCHLORIDE
  4. (MEBEVERINE HYDROCHLORIDE) [Concomitant]
  5. (PIZOTIFEN) [Concomitant]
  6. SERTRALINE HYDROCHLORIDE. [Concomitant]
     Active Substance: SERTRALINE HYDROCHLORIDE
  7. PARECOXIB SODIUM. [Suspect]
     Active Substance: PARECOXIB SODIUM
     Indication: POSTOPERATIVE ANALGESIA
     Dosage: 40 MG, INTRAVENOUS
     Route: 042
     Dates: start: 20100305, end: 20100306
  8. DESOGESTREL AND ETHINYL ESTRADIOL [Concomitant]
     Active Substance: DESOGESTREL\ETHINYL ESTRADIOL
  9. CODEINE SULFATE. [Concomitant]
     Active Substance: CODEINE SULFATE

REACTIONS (6)
  - Acute coronary syndrome [None]
  - Respiratory arrest [None]
  - Arteriospasm coronary [None]
  - Headache [None]
  - Electrocardiogram T wave inversion [None]
  - Electrocardiogram ST segment depression [None]

NARRATIVE: CASE EVENT DATE: 20100306
